FAERS Safety Report 9034364 (Version 2)
Quarter: 2013Q1

REPORT INFORMATION
  Report Type: Spontaneous
  Country: US (occurrence: None)
  Receive Date: 20130111
  Receipt Date: 20130130
  Transmission Date: 20140127
  Serious: Yes (Other)
  Sender: FDA-Public Use
  Company Number: ACO_33659_2013

PATIENT
  Sex: Female
  Weight: 84.8 kg

DRUGS (18)
  1. AMPYRA (DALFAMPRIDINE) TABLET, 10MG [Suspect]
     Indication: PRODUCT USED FOR UNKNOWN INDICATION
  2. COPAXONE (GLATIRAMER ACETATE) [Concomitant]
  3. BUMEX (BUMETANIDE) [Concomitant]
  4. VITAMIN D3 (COLECALCIFEROL) [Concomitant]
  5. AMANTADINE (AMANTADINE HYDROCHLORIDE) [Concomitant]
  6. BACLOFEN [Concomitant]
  7. POLYETHYLENE GLYCOL (MACROGOL) [Concomitant]
  8. GABAPENTIN (GABAPENTIN) [Concomitant]
  9. ZOLOFT (SERTRALINE HYDROCHLORIDE) [Concomitant]
  10. ACIPHEX (RABEPRAZOLE SODIUM) [Concomitant]
  11. POTASSIUM (POTASSIUM) [Concomitant]
  12. ATENOLOL (ATENOLOL) [Concomitant]
  13. TRIAMTERENE AND HYDROCHLOROTHIAZIDE (HYDROCHLOROTHIAZIDE, TRIAMTERENE) [Concomitant]
  14. REQUIP (ROPINIROLE HYDROCHLORIDE) [Concomitant]
  15. MULTIVITAMIN (VITAMINS NOS) [Concomitant]
  16. CALCIUM (CALCIUM) [Concomitant]
  17. SIMVASTATIN (SIMVASTATIN) [Concomitant]
  18. ALEVE (NAPROXEN SODIUM) [Concomitant]

REACTIONS (2)
  - Grand mal convulsion [None]
  - Cystitis [None]
